FAERS Safety Report 20112157 (Version 1)
Quarter: 2021Q4

REPORT INFORMATION
  Report Type: Spontaneous
  Country: KR (occurrence: KR)
  Receive Date: 20211125
  Receipt Date: 20211125
  Transmission Date: 20220303
  Serious: Yes (Other)
  Sender: FDA-Public Use
  Company Number: KR-MLMSERVICE-20211109-3212218-1

PATIENT
  Age: 17 Year
  Sex: Female

DRUGS (12)
  1. ETOPOSIDE [Suspect]
     Active Substance: ETOPOSIDE
     Indication: Hodgkin^s disease
     Dosage: CYCLE A
     Dates: start: 201607, end: 201612
  2. PROCARBAZINE [Suspect]
     Active Substance: PROCARBAZINE
     Indication: Hodgkin^s disease
     Dosage: CYCLE B
     Dates: start: 201607, end: 201612
  3. METHYLPREDNISOLONE [Suspect]
     Active Substance: METHYLPREDNISOLONE
     Indication: Post transplant lymphoproliferative disorder
     Dosage: CYCLE C
     Dates: start: 201607, end: 201612
  4. DOXORUBICIN [Suspect]
     Active Substance: DOXORUBICIN
     Indication: Post transplant lymphoproliferative disorder
     Dosage: CYCLE C
     Dates: start: 201607, end: 201612
  5. CYTARABINE [Suspect]
     Active Substance: CYTARABINE
     Indication: Post transplant lymphoproliferative disorder
     Dosage: CYCLE A (HIGH DOSE)
     Dates: start: 201607, end: 201612
  6. BLEOMYCIN [Suspect]
     Active Substance: BLEOMYCIN SULFATE
     Indication: Hodgkin^s disease
     Dosage: CYCLE B
     Dates: start: 201607, end: 201612
  7. VINCRISTINE [Suspect]
     Active Substance: VINCRISTINE
     Indication: Post transplant lymphoproliferative disorder
     Dosage: CYCLE B
     Dates: start: 201607, end: 201612
  8. CYCLOPHOSPHAMIDE [Suspect]
     Active Substance: CYCLOPHOSPHAMIDE
     Indication: Post transplant lymphoproliferative disorder
     Dosage: CYCLE C
     Dates: start: 201607, end: 201612
  9. PREDNISONE [Suspect]
     Active Substance: PREDNISONE
     Indication: Post transplant lymphoproliferative disorder
     Dosage: CYCLE C
     Dates: start: 201607, end: 201612
  10. RITUXIMAB [Suspect]
     Active Substance: RITUXIMAB
     Indication: Hodgkin^s disease
     Dosage: 4 TIMES AT THE START OF CYCLES A, B, C AND IN-BETWEEN B AND C OF THE FIRST COURSE OF CHEMOTHERAPY
     Dates: start: 201607, end: 201612
  11. VINBLASTINE [Suspect]
     Active Substance: VINBLASTINE
     Indication: Hodgkin^s disease
     Dosage: CYCLE B
     Dates: start: 201607, end: 201612
  12. TACROLIMUS [Concomitant]
     Active Substance: TACROLIMUS
     Indication: Immunosuppressant drug therapy
     Dates: start: 201607

REACTIONS (2)
  - Thrombocytopenia [Recovering/Resolving]
  - Bone marrow failure [Unknown]

NARRATIVE: CASE EVENT DATE: 20161201
